FAERS Safety Report 8908913 (Version 2)
Quarter: 2013Q1

REPORT INFORMATION
  Report Type: Spontaneous
  Country: US (occurrence: US)
  Receive Date: 20121114
  Receipt Date: 20130205
  Transmission Date: 20140127
  Serious: No
  Sender: FDA-Public Use
  Company Number: US-ASTRAZENECA-2012SE82226

PATIENT
  Age: 17 Year
  Sex: Male

DRUGS (5)
  1. SYMBICORT PMDI [Suspect]
     Dosage: FREQUENCY TWO TIMES A DAY
     Route: 055
  2. SYMBICORT PMDI [Suspect]
     Dosage: FREQUENCY ONCE A DAY
     Route: 055
  3. ZYRTEC [Concomitant]
  4. SINGULAIR [Concomitant]
  5. NEBULIZER [Concomitant]

REACTIONS (5)
  - Asthma [Unknown]
  - Chest pain [Unknown]
  - Malaise [Unknown]
  - Hypersensitivity [Unknown]
  - Intentional drug misuse [Unknown]
